FAERS Safety Report 8487380-5 (Version None)
Quarter: 2012Q3

REPORT INFORMATION
  Report Type: 
  Country: None (occurrence: None)
  Receive Date: 20120705
  Receipt Date: 20120622
  Transmission Date: 20120928
  Serious: Yes (Other)
  Sender: FDA-Public Use
  Company Number: US-ELI_LILLY_AND_COMPANY-US201206009120

PATIENT
  Age: 67 Year
  Sex: Female

DRUGS (3)
  1. INSULIN [Concomitant]
  2. CYMBALTA [Suspect]
     Dosage: 60 MG, QD
  3. CYMBALTA [Suspect]
     Indication: DEPRESSION
     Dosage: 60 MG, BID

REACTIONS (8)
  - BLOOD GLUCOSE ABNORMAL [None]
  - THERAPEUTIC RESPONSE DECREASED [None]
  - OEDEMA PERIPHERAL [None]
  - RENAL IMPAIRMENT [None]
  - ANGIOPATHY [None]
  - CARDIOMEGALY [None]
  - BLISTER [None]
  - URINARY TRACT INFECTION [None]
